FAERS Safety Report 10090393 (Version 2)
Quarter: 2014Q2

REPORT INFORMATION
  Report Type: Spontaneous
  Country: US (occurrence: US)
  Receive Date: 20140421
  Receipt Date: 20140513
  Transmission Date: 20141212
  Serious: Yes (Life-Threatening, Other)
  Sender: FDA-Public Use
  Company Number: US-CELGENEUS-163-POMAL-14042372

PATIENT
  Age: 57 Year
  Sex: Male

DRUGS (2)
  1. POMALYST [Suspect]
     Indication: PLASMA CELL MYELOMA
     Dosage: 4 MILLIGRAM
     Route: 048
     Dates: start: 20140407, end: 20140410
  2. POMALYST [Suspect]
     Dosage: 2 MILLIGRAM
     Dates: start: 20140505, end: 20140507

REACTIONS (3)
  - Pulmonary oedema [Unknown]
  - Swelling face [Unknown]
  - Rash [Unknown]
